FAERS Safety Report 5157860-9 (Version None)
Quarter: 2006Q4

REPORT INFORMATION
  Report Type: 
  Country: None (occurrence: None)
  Receive Date: 20061115
  Receipt Date: 20061106
  Transmission Date: 20070319
  Serious: Yes (Hospitalization)
  Sender: FDA-Public Use
  Company Number: GXKR2006CH07101

PATIENT
  Age: 36 Year
  Sex: Female

DRUGS (4)
  1. PREDNISONE [Suspect]
     Indication: FACIAL PARESIS
     Dosage: 50 MG DECREASING, QD
  2. HYPERICUM PERFORATUM (HYPERCIUM PERFORATUM) [Suspect]
  3. COCANE(COCAINE) [Suspect]
     Dosage: 0.1 G, TID, INHALATION
     Route: 055
  4. ALCOHOL(ETHANOL) [Suspect]

REACTIONS (10)
  - ABNORMAL BEHAVIOUR [None]
  - AGGRESSION [None]
  - DISINHIBITION [None]
  - DISTURBANCE IN ATTENTION [None]
  - MANIA [None]
  - MENTAL IMPAIRMENT [None]
  - MOOD SWINGS [None]
  - SLEEP DISORDER [None]
  - STRESS [None]
  - TENSION [None]
